FAERS Safety Report 4769901-9 (Version None)
Quarter: 2005Q3

REPORT INFORMATION
  Report Type: 
  Country: None (occurrence: None)
  Receive Date: 20050914
  Receipt Date: 20050624
  Transmission Date: 20060218
  Serious: Yes (Hospitalization)
  Sender: FDA-Public Use
  Company Number: 2005BH000377

PATIENT
  Age: 36 Year
  Sex: Male

DRUGS (3)
  1. VANCOMYCIN HCL [Suspect]
     Dosage: 1 GM; 2X A DAY; IV
     Route: 042
  2. KEFLEX [Concomitant]
  3. PENICILLIN [Concomitant]

REACTIONS (1)
  - NEUTROPENIA [None]
